FAERS Safety Report 25213712 (Version 3)
Quarter: 2025Q3

REPORT INFORMATION
  Report Type: Spontaneous
  Country: EU (occurrence: EU)
  Receive Date: 20250418
  Receipt Date: 20250813
  Transmission Date: 20251021
  Serious: Yes (Other)
  Sender: PFIZER
  Company Number: EU-PFIZER INC-PV202500043935

PATIENT
  Sex: Male

DRUGS (1)
  1. HYMPAVZI [Suspect]
     Active Substance: MARSTACIMAB-HNCQ
     Indication: Factor IX deficiency

REACTIONS (2)
  - Haemarthrosis [Unknown]
  - Joint microhaemorrhage [Unknown]
